FAERS Safety Report 18324809 (Version 1)
Quarter: 2020Q3

REPORT INFORMATION
  Report Type: Spontaneous
  Country: US (occurrence: US)
  Receive Date: 20200928
  Receipt Date: 20200928
  Transmission Date: 20201103
  Serious: No
  Sender: FDA-Public Use
  Company Number: US-SEATTLE GENETICS-2020SGN00346

PATIENT

DRUGS (1)
  1. ADCETRIS [Suspect]
     Active Substance: BRENTUXIMAB VEDOTIN
     Indication: BREAST IMPLANT-ASSOCIATED ANAPLASTIC LARGE CELL LYMPHOMA
     Route: 065

REACTIONS (1)
  - Pyrexia [Unknown]
